FAERS Safety Report 8157823-5 (Version None)
Quarter: 2012Q1

REPORT INFORMATION
  Report Type: 
  Country: None (occurrence: None)
  Receive Date: 20120222
  Receipt Date: 20120217
  Transmission Date: 20120608
  Serious: Yes (Other)
  Sender: FDA-Public Use
  Company Number: CL-ABBOTT-12R-034-0903872-00

PATIENT
  Sex: Female
  Weight: 1.42 kg

DRUGS (5)
  1. SURVANTA [Suspect]
     Indication: PREMATURE BABY
     Dosage: INTRATRACHEAL  FIRST DOSE 6-FEB-2012  2ND DOSE 7-FEB-2012
  2. AMIKACIN [Concomitant]
     Indication: PRODUCT USED FOR UNKNOWN INDICATION
     Dosage: 25 MG EVERY 36 HOURS VIA EV
     Dates: start: 20120207
  3. AMPICILLIN [Concomitant]
     Indication: PRODUCT USED FOR UNKNOWN INDICATION
     Dosage: BID, VIA E.V.
     Dates: start: 20120207
  4. CAFFEINE [Concomitant]
     Indication: PRODUCT USED FOR UNKNOWN INDICATION
     Dosage: 13 MG ONCE
     Dates: start: 20120207
  5. CAFFEINE [Concomitant]
     Dosage: 4 MG EVERY 24 HOURS
     Dates: start: 20120207

REACTIONS (3)
  - NEONATAL RESPIRATORY DISTRESS SYNDROME [None]
  - PNEUMOMEDIASTINUM [None]
  - DRUG INEFFECTIVE [None]
